FAERS Safety Report 12272474 (Version 1)
Quarter: 2016Q2

REPORT INFORMATION
  Report Type: Spontaneous
  Country: CA (occurrence: CA)
  Receive Date: 20160415
  Receipt Date: 20160415
  Transmission Date: 20160815
  Serious: Yes (Other)
  Sender: FDA-Public Use
  Company Number: CA-BAYER-2016-070698

PATIENT
  Sex: Female
  Weight: 54 kg

DRUGS (1)
  1. MIRENA [Suspect]
     Active Substance: LEVONORGESTREL
     Indication: CONTRACEPTION
     Dosage: 20 MCG/24HR, CONT
     Route: 067

REACTIONS (4)
  - Breast tenderness [Recovered/Resolved]
  - Nausea [Recovered/Resolved]
  - Breast swelling [Recovered/Resolved]
  - Ovarian cyst [Recovered/Resolved]
